FAERS Safety Report 23135448 (Version 1)
Quarter: 2023Q4

REPORT INFORMATION
  Report Type: Spontaneous
  Country: US (occurrence: US)
  Receive Date: 20231101
  Receipt Date: 20231101
  Transmission Date: 20240110
  Serious: No
  Sender: FDA-Public Use
  Company Number: US-BAYER-2023A154617

PATIENT
  Sex: Male

DRUGS (1)
  1. NUBEQA [Suspect]
     Active Substance: DAROLUTAMIDE
     Dosage: UNK

REACTIONS (6)
  - Vision blurred [None]
  - Feeling cold [None]
  - Feeling hot [None]
  - Flushing [None]
  - Pollakiuria [None]
  - Asthenia [None]
